FAERS Safety Report 5091152-1 (Version None)
Quarter: 2006Q3

REPORT INFORMATION
  Report Type: 
  Country: None (occurrence: None)
  Receive Date: 20060824
  Receipt Date: 20060812
  Transmission Date: 20061208
  Serious: Yes (Disabling)
  Sender: FDA-Public Use
  Company Number: 2006099290

PATIENT
  Age: 53 Year
  Sex: Female
  Weight: 77.1115 kg

DRUGS (3)
  1. RELPAX [Suspect]
     Indication: MIGRAINE
     Dosage: 40 MG
     Dates: start: 20060808
  2. BENADRYL [Suspect]
     Indication: MIGRAINE
  3. VICODIN ES [Concomitant]

REACTIONS (5)
  - DISORIENTATION [None]
  - DYSSTASIA [None]
  - HEADACHE [None]
  - INSOMNIA [None]
  - MIGRAINE [None]
